FAERS Safety Report 23441543 (Version 1)
Quarter: 2024Q1

REPORT INFORMATION
  Report Type: Spontaneous
  Country: IT (occurrence: IT)
  Receive Date: 20240125
  Receipt Date: 20240125
  Transmission Date: 20240410
  Serious: Yes (Other)
  Sender: FDA-Public Use
  Company Number: None

PATIENT
  Age: 76 Year
  Sex: Male

DRUGS (4)
  1. CAPECITABINE [Suspect]
     Active Substance: CAPECITABINE
     Indication: Gastric cancer
     Dosage: THERAPY START 11/2022 - THERAPY EVERY 21DAYS, G 1 - 14- II CYCLE?DAILY DOSE: 2000 MILLIGRAM
     Route: 048
     Dates: start: 20221214, end: 20221228
  2. CAPECITABINE [Suspect]
     Active Substance: CAPECITABINE
     Indication: Gastric cancer
     Dosage: THERAPY START 11/2022 - THERAPY EVERY 21 DAYS, G 1- 14 - 3RD CYCLE?DAILY DOSE: 2000 MILLIGRAM
     Route: 048
     Dates: start: 20230104, end: 20230114
  3. OXALIPLATIN [Suspect]
     Active Substance: OXALIPLATIN
     Indication: Gastric cancer
     Dosage: THERAPY START 11/2022 - THERAPY EVERY 21DAYS - CYCLE II
     Route: 042
     Dates: start: 20221213, end: 20221213
  4. OXALIPLATIN [Suspect]
     Active Substance: OXALIPLATIN
     Indication: Gastric cancer
     Dosage: THERAPY START 11/2022 - THERAPY EVERY 21 DAYS - 3RD CYCLE
     Route: 042
     Dates: start: 20230103, end: 20230103

REACTIONS (6)
  - Azotaemia [Recovering/Resolving]
  - Thrombocytopenia [Recovering/Resolving]
  - Leukopenia [Recovering/Resolving]
  - Neutropenia [Recovering/Resolving]
  - Haemoglobin decreased [Recovering/Resolving]
  - Nausea [Recovered/Resolved]

NARRATIVE: CASE EVENT DATE: 20230102
